FAERS Safety Report 4376464-9 (Version None)
Quarter: 2004Q2

REPORT INFORMATION
  Report Type: 
  Country: None (occurrence: None)
  Receive Date: 20040608
  Receipt Date: 20040527
  Transmission Date: 20050107
  Serious: Yes (Other)
  Sender: FDA-Public Use
  Company Number: 163-20785-04010477

PATIENT
  Age: 53 Year
  Sex: Female

DRUGS (6)
  1. THALOMID [Suspect]
     Indication: MULTIPLE MYELOMA
     Dosage: 50 MG, DAILY, ORAL
     Route: 048
     Dates: start: 20020301, end: 20031201
  2. AREDIA [Concomitant]
  3. ASPIRIN [Concomitant]
  4. MULTIPLE VITAMINS (MULTIPLE VITAMINS) [Concomitant]
  5. OXYCODONE HCL [Concomitant]
  6. OXYCONTIN [Concomitant]

REACTIONS (2)
  - NEUROPATHY [None]
  - PULMONARY HYPERTENSION [None]
